FAERS Safety Report 5339597-6 (Version None)
Quarter: 2007Q2

REPORT INFORMATION
  Report Type: 
  Country: None (occurrence: None)
  Receive Date: 20070525
  Receipt Date: 20070515
  Transmission Date: 20071010
  Serious: Yes (Hospitalization)
  Sender: FDA-Public Use
  Company Number: TKT01200700234

PATIENT
  Age: 6 Year
  Sex: Male
  Weight: 29 kg

DRUGS (1)
  1. IDURSULFASE (IDURSULFASE) (0.5 MILLIGRAM(S) /KILOGRAM, CONCENTRATE FOR [Suspect]
     Indication: MUCOPOLYSACCHARIDOSIS II
     Dosage: (0.5 MG/KG, 1 IN 1  WK) INTRAVENOUS DRIP
     Route: 041
     Dates: start: 20061113

REACTIONS (2)
  - BLOOD PRESSURE INCREASED [None]
  - CONDITION AGGRAVATED [None]
